FAERS Safety Report 5064226-9 (Version None)
Quarter: 2006Q3

REPORT INFORMATION
  Report Type: 
  Country: None (occurrence: None)
  Receive Date: 20060728
  Receipt Date: 20060712
  Transmission Date: 20061208
  Serious: Yes (Other)
  Sender: FDA-Public Use
  Company Number: PHHO2006BE11197

PATIENT
  Sex: Female

DRUGS (1)
  1. FEMARA [Suspect]
     Indication: BREAST CANCER

REACTIONS (6)
  - APPLICATION SITE REACTION [None]
  - DRUG TOXICITY [None]
  - ERYSIPELAS [None]
  - ERYTHEMA [None]
  - PAIN OF SKIN [None]
  - SKIN WARM [None]
